FAERS Safety Report 26219304 (Version 1)
Quarter: 2025Q4

REPORT INFORMATION
  Report Type: Spontaneous
  Country: EU (occurrence: EU)
  Receive Date: 20251231
  Receipt Date: 20251231
  Transmission Date: 20260117
  Serious: Yes (Hospitalization, Congenital Anomaly, Other)
  Sender: PFIZER
  Company Number: EU-PFIZER INC-PV202500152694

PATIENT
  Sex: Male

DRUGS (2)
  1. INFLIXIMAB [Suspect]
     Active Substance: INFLIXIMAB
     Indication: Colitis ulcerative
     Dosage: 300 MG, EVERY 8 WEEKS
     Route: 064
     Dates: start: 202303
  2. IMURAN [Suspect]
     Active Substance: AZATHIOPRINE
     Indication: Colitis ulcerative
     Dosage: 50 MG, 1X/DAY
     Route: 064
     Dates: start: 20200721

REACTIONS (4)
  - Hydrocephalus [Unknown]
  - Neurological infection [Unknown]
  - Choroid plexus papilloma [Not Recovered/Not Resolved]
  - Foetal exposure during pregnancy [Not Recovered/Not Resolved]

NARRATIVE: CASE EVENT DATE: 20240101
